FAERS Safety Report 7978752-3 (Version None)
Quarter: 2011Q4

REPORT INFORMATION
  Report Type: 
  Country: None (occurrence: None)
  Receive Date: 20111214
  Receipt Date: 20111212
  Transmission Date: 20120403
  Serious: Yes (Hospitalization)
  Sender: FDA-Public Use
  Company Number: JP-PFIZER INC-2011236871

PATIENT
  Age: 32 Year
  Sex: Female
  Weight: 42 kg

DRUGS (7)
  1. SOMATROPIN [Suspect]
     Indication: GROWTH HORMONE DEFICIENCY
     Dosage: 0.7 MG/WEEK, SEVENT INJECTIONS
     Route: 058
     Dates: start: 20060922, end: 20070322
  2. LEVOTHYROXINE SODIUM [Concomitant]
     Indication: SUPPLEMENTATION THERAPY
     Dosage: UNK
     Route: 048
  3. SOMATROPIN [Suspect]
     Dosage: 1.4 MG/WEEK, SEVENT INJECTIONS
     Route: 058
     Dates: start: 20070323, end: 20070903
  4. DESMOPRESSIN [Concomitant]
     Indication: SUPPLEMENTATION THERAPY
     Route: 045
  5. SOMATROPIN [Suspect]
     Dosage: 2.1 MG/WEEK, SEVENT INJECTIONS
     Route: 058
     Dates: start: 20070904, end: 20090904
  6. SOMATROPIN [Suspect]
     Dosage: 2.8 MG/WEEK, SEVENT INJECTIONS
     Route: 058
     Dates: start: 20090905, end: 20110606
  7. CORTRIL [Concomitant]
     Indication: SUPPLEMENTATION THERAPY
     Dosage: UNK
     Route: 048

REACTIONS (1)
  - HEPATOBLASTOMA RECURRENT [None]
